FAERS Safety Report 5748809-6 (Version None)
Quarter: 2008Q2

REPORT INFORMATION
  Report Type: 
  Country: None (occurrence: None)
  Receive Date: 20080522
  Receipt Date: 20080514
  Transmission Date: 20081010
  Serious: Yes (Death)
  Sender: FDA-Public Use
  Company Number: TCI2007A05522

PATIENT
  Age: 80 Year
  Sex: Male

DRUGS (2)
  1. LEUPROLIDE ACETATE [Suspect]
     Indication: PROSTATE CANCER STAGE II
     Dosage: 11.25 MG (11.25 MG,1 IN 12 WK)
     Route: 058
     Dates: start: 20060920, end: 20070307
  2. CASODEX [Concomitant]

REACTIONS (4)
  - ATRIAL FIBRILLATION [None]
  - CEREBRAL INFARCTION [None]
  - EMBOLIC STROKE [None]
  - PULMONARY INFARCTION [None]
